FAERS Safety Report 9706056 (Version 3)
Quarter: 2013Q4

REPORT INFORMATION
  Report Type: Report from Study
  Country: US (occurrence: US)
  Receive Date: 20131123
  Receipt Date: 20131224
  Transmission Date: 20140711
  Serious: Yes (Death, Hospitalization)
  Sender: FDA-Public Use
  Company Number: US-IPSEN BIOPHARMACEUTICALS, INC.-2013-5137

PATIENT
  Age: 57 Year
  Sex: Female

DRUGS (1)
  1. SOMATULINE DEPOT INJECTION (120MG) [Suspect]
     Indication: CARCINOID SYNDROME
     Dosage: 120MG EVERY 14 DAYS
     Route: 058
     Dates: start: 20120428

REACTIONS (12)
  - Death [Fatal]
  - Lung neoplasm malignant [Unknown]
  - Pain [Unknown]
  - Weight decreased [Unknown]
  - Ascites [Unknown]
  - Intestinal ischaemia [Unknown]
  - Small intestinal obstruction [Unknown]
  - Malnutrition [Unknown]
  - Dyspepsia [Unknown]
  - Nausea [Unknown]
  - Vomiting [Unknown]
  - Fatigue [Unknown]
